FAERS Safety Report 16175229 (Version 2)
Quarter: 2019Q2

REPORT INFORMATION
  Report Type: Spontaneous
  Country: US (occurrence: US)
  Receive Date: 20190409
  Receipt Date: 20190501
  Transmission Date: 20190711
  Serious: Yes (Hospitalization)
  Sender: FDA-Public Use
  Company Number: US-ROCHE-2296085

PATIENT
  Age: 22 Year
  Sex: Female

DRUGS (1)
  1. XOFLUZA [Suspect]
     Active Substance: BALOXAVIR MARBOXIL
     Indication: INFLUENZA
     Dosage: ONE TIME DOSE
     Route: 048

REACTIONS (3)
  - Vulvovaginal discomfort [Unknown]
  - Erythema multiforme [Unknown]
  - Vulvovaginal burning sensation [Unknown]
